FAERS Safety Report 8127226 (Version 3)
Quarter: 2014Q4

REPORT INFORMATION
  Report Type: Report from Study
  Country: TW (occurrence: TW)
  Receive Date: 20110908
  Receipt Date: 20141223
  Transmission Date: 20150529
  Serious: Yes (Death, Hospitalization)
  Sender: FDA-Public Use
  Company Number: PHHY2011TW78696

PATIENT
  Age: 82 Year
  Sex: Female
  Weight: 71 kg

DRUGS (4)
  1. ICL670A [Suspect]
     Active Substance: DEFERASIROX
     Dosage: 750 MG, UNK
     Route: 048
     Dates: start: 20100507, end: 20100715
  2. ASA [Concomitant]
     Active Substance: ASPIRIN
     Indication: PRODUCT USED FOR UNKNOWN INDICATION
     Route: 065
  3. ICL670A [Suspect]
     Active Substance: DEFERASIROX
     Dosage: 500 MG, UNK
     Route: 048
     Dates: start: 20100908, end: 20110719
  4. ICL670A [Suspect]
     Active Substance: DEFERASIROX
     Indication: IRON OVERLOAD
     Dosage: 1250 MG, UNK
     Route: 048
     Dates: start: 20100409, end: 20100506

REACTIONS (26)
  - Cardiac failure congestive [Fatal]
  - Myocardial necrosis marker increased [Unknown]
  - Weight increased [Unknown]
  - Blood pressure decreased [Unknown]
  - Dyspepsia [Unknown]
  - Ventricular fibrillation [Unknown]
  - Cold sweat [Unknown]
  - Cardiogenic shock [Fatal]
  - Muscle disorder [Unknown]
  - Cerebrovascular accident [Unknown]
  - Oedema [Fatal]
  - Peripheral arterial occlusive disease [Unknown]
  - General physical health deterioration [Unknown]
  - Thrombocytopenia [Unknown]
  - Urine output decreased [Unknown]
  - Urinary tract infection [Unknown]
  - Renal impairment [Unknown]
  - Acute myocardial infarction [Fatal]
  - Hypotension [Fatal]
  - Hypoxia [Unknown]
  - Gastrointestinal haemorrhage [Unknown]
  - Pulmonary congestion [Fatal]
  - Electrocardiogram ST segment depression [Unknown]
  - Altered state of consciousness [Unknown]
  - Coronary artery disease [Fatal]
  - Anaemia [Unknown]

NARRATIVE: CASE EVENT DATE: 20110719
